FAERS Safety Report 6519987-6 (Version None)
Quarter: 2009Q4

REPORT INFORMATION
  Report Type: 
  Country: None (occurrence: None)
  Receive Date: 20091229
  Receipt Date: 20091218
  Transmission Date: 20100525
  Serious: Yes (Life-Threatening, Other)
  Sender: FDA-Public Use
  Company Number: JP-JNJFOC-20091102062

PATIENT
  Sex: Female

DRUGS (8)
  1. CRAVIT [Suspect]
     Indication: BRONCHITIS
     Route: 048
     Dates: start: 20091025, end: 20091026
  2. CRAVIT [Suspect]
     Indication: PYREXIA
     Route: 048
     Dates: start: 20091025, end: 20091026
  3. LOXONIN [Suspect]
     Indication: DRUG USE FOR UNKNOWN INDICATION
     Route: 048
     Dates: start: 20091025
  4. THEO-SLOW [Interacting]
     Indication: DRUG USE FOR UNKNOWN INDICATION
     Route: 048
     Dates: end: 20091026
  5. ASPIRIN [Concomitant]
     Route: 048
     Dates: end: 20091026
  6. CLARITIN [Concomitant]
     Route: 048
     Dates: end: 20091026
  7. PARIET [Concomitant]
     Route: 048
     Dates: start: 20091002, end: 20091026
  8. NEOPHYLLIN INJECTION [Concomitant]
     Route: 065

REACTIONS (10)
  - ALTERED STATE OF CONSCIOUSNESS [None]
  - ATRIAL FIBRILLATION [None]
  - BLOOD CREATINE PHOSPHOKINASE INCREASED [None]
  - BODY TEMPERATURE INCREASED [None]
  - CONVULSION [None]
  - DRUG INTERACTION [None]
  - DRUG LEVEL INCREASED [None]
  - INTERNATIONAL NORMALISED RATIO INCREASED [None]
  - MYOGLOBIN BLOOD INCREASED [None]
  - TRANSAMINASES INCREASED [None]
